FAERS Safety Report 7129990-3 (Version None)
Quarter: 2010Q4

REPORT INFORMATION
  Report Type: 
  Country: None (occurrence: None)
  Receive Date: 20101201
  Receipt Date: 20101122
  Transmission Date: 20110411
  Serious: Yes (Hospitalization)
  Sender: FDA-Public Use
  Company Number: US-BIOGENIDEC-2010BI039734

PATIENT
  Sex: Female
  Weight: 81 kg

DRUGS (6)
  1. AVONEX [Suspect]
     Indication: MULTIPLE SCLEROSIS
     Route: 030
     Dates: start: 20100929
  2. LISINOPRIL [Concomitant]
     Indication: HYPERTENSION
     Dates: start: 20050101
  3. LOVASTATIN [Concomitant]
     Indication: BLOOD CHOLESTEROL INCREASED
     Dates: start: 20050101
  4. TOPROL-XL [Concomitant]
     Indication: HYPERTENSION
     Dates: start: 20090101
  5. DICLOFENAC SODIUM [Concomitant]
     Indication: ARTHRITIS
  6. OMEPRAZOLE [Concomitant]
     Indication: GASTROOESOPHAGEAL REFLUX DISEASE

REACTIONS (2)
  - GOITRE [None]
  - THYROID CYST [None]
